FAERS Safety Report 18487386 (Version 1)
Quarter: 2020Q4

REPORT INFORMATION
  Report Type: Spontaneous
  Country: JP (occurrence: JP)
  Receive Date: 20201111
  Receipt Date: 20201111
  Transmission Date: 20210114
  Serious: Yes (Hospitalization, Other)
  Sender: FDA-Public Use
  Company Number: JP-BRISTOL-MYERS SQUIBB COMPANY-BMS-2020-092390

PATIENT
  Age: 46 Year
  Sex: Female
  Weight: 56.8 kg

DRUGS (12)
  1. DECADRON [Concomitant]
     Active Substance: DEXAMETHASONE
     Indication: BRAIN OEDEMA
     Dosage: 8 MILLIGRAM
     Route: 065
     Dates: start: 20200727, end: 20200729
  2. YERVOY [Suspect]
     Active Substance: IPILIMUMAB
     Dosage: 56.3 MILLIGRAM, ONE TIME DOSE
     Route: 041
     Dates: start: 20200827, end: 20200827
  3. ZOLPIDEM TARTRATE. [Concomitant]
     Active Substance: ZOLPIDEM TARTRATE
     Indication: PRODUCT USED FOR UNKNOWN INDICATION
     Dosage: UNK
     Route: 065
     Dates: start: 20200809
  4. LOXOPROFEN NA [Concomitant]
     Active Substance: LOXOPROFEN SODIUM
     Indication: PRODUCT USED FOR UNKNOWN INDICATION
     Dosage: UNK
     Route: 065
     Dates: end: 20200807
  5. OPDIVO [Suspect]
     Active Substance: NIVOLUMAB
     Indication: RENAL CELL CARCINOMA
     Dosage: 200 MILLIGRAM, ONE TIME DOSE
     Route: 041
     Dates: start: 20200806, end: 20200806
  6. OPDIVO [Suspect]
     Active Substance: NIVOLUMAB
     Dosage: 200 MILLIGRAM, ONE TIME DOSE
     Route: 041
     Dates: start: 20200827, end: 20200827
  7. DECADRON [Concomitant]
     Active Substance: DEXAMETHASONE
     Dosage: 4 MILLIGRAM
     Route: 065
     Dates: start: 20200730, end: 20200801
  8. REBAMIPIDE [Concomitant]
     Active Substance: REBAMIPIDE
     Indication: PRODUCT USED FOR UNKNOWN INDICATION
     Dosage: UNK
     Route: 065
     Dates: end: 20200807
  9. YERVOY [Suspect]
     Active Substance: IPILIMUMAB
     Indication: RENAL CELL CARCINOMA
     Dosage: 56.3 MILLIGRAM, ONE TIME DOSE
     Route: 041
     Dates: start: 20200806, end: 20200806
  10. DECADRON [Concomitant]
     Active Substance: DEXAMETHASONE
     Dosage: 2 MILLIGRAM
     Route: 065
     Dates: start: 20201004
  11. DECADRON [Concomitant]
     Active Substance: DEXAMETHASONE
     Dosage: 2 MILLIGRAM
     Route: 065
     Dates: start: 20200802
  12. LANSOPRAZOLE. [Concomitant]
     Active Substance: LANSOPRAZOLE
     Indication: DYSPEPSIA
     Dosage: UNK
     Route: 065
     Dates: start: 20200727

REACTIONS (8)
  - Malignant neoplasm progression [Unknown]
  - Cystitis [Unknown]
  - Cytomegalovirus test positive [Unknown]
  - Diarrhoea [Unknown]
  - Platelet count decreased [Unknown]
  - Drug-induced liver injury [Not Recovered/Not Resolved]
  - Depressed level of consciousness [Unknown]
  - Headache [Unknown]

NARRATIVE: CASE EVENT DATE: 20200807
